FAERS Safety Report 11703047 (Version 10)
Quarter: 2017Q1

REPORT INFORMATION
  Report Type: Spontaneous
  Country: US (occurrence: US)
  Receive Date: 20151105
  Receipt Date: 20170104
  Transmission Date: 20170428
  Serious: Yes (Death, Congenital Anomaly, Other)
  Sender: FDA-Public Use
  Company Number: PHEH2015US022668

PATIENT
  Sex: Male

DRUGS (3)
  1. ONDANSETRON. [Suspect]
     Active Substance: ONDANSETRON
     Indication: FOETAL EXPOSURE DURING PREGNANCY
     Dosage: MOTHER DOSE: 4 MG TO 8 MG
     Route: 064
  2. ZOFRAN ODT [Suspect]
     Active Substance: ONDANSETRON HYDROCHLORIDE
     Indication: FOETAL EXPOSURE DURING PREGNANCY
     Dosage: MOTHER DOSE: 8 MG Q8H
     Route: 064
  3. ONDANSETRON HYDROCHLORIDE. [Suspect]
     Active Substance: ONDANSETRON HYDROCHLORIDE
     Indication: FOETAL EXPOSURE DURING PREGNANCY
     Dosage: MOTHER DOSE: 04 TO 08 MG
     Route: 064

REACTIONS (16)
  - Hypoplastic left heart syndrome [Unknown]
  - Multiple cardiac defects [Fatal]
  - Emotional distress [Unknown]
  - Congenital cardiovascular anomaly [Unknown]
  - Hydrops foetalis [Unknown]
  - Injury [Unknown]
  - Multiple congenital abnormalities [Unknown]
  - Pain [Unknown]
  - Anhedonia [Unknown]
  - Malformation venous [Unknown]
  - Mirror syndrome [Unknown]
  - Anxiety [Unknown]
  - Cardiac ventricular disorder [Unknown]
  - Hypoplastic right heart syndrome [Unknown]
  - Heart disease congenital [Unknown]
  - Foetal exposure during pregnancy [Unknown]
